FAERS Safety Report 20039134 (Version 23)
Quarter: 2023Q2

REPORT INFORMATION
  Report Type: Spontaneous
  Country: JP (occurrence: JP)
  Receive Date: 20211105
  Receipt Date: 20230630
  Transmission Date: 20230721
  Serious: Yes (Other)
  Sender: FDA-Public Use
  Company Number: JP-ONO-2021JP027569

PATIENT
  Age: 75 Year
  Sex: Male

DRUGS (3)
  1. YERVOY [Suspect]
     Active Substance: IPILIMUMAB
     Indication: Non-small cell lung cancer recurrent
     Route: 041
  2. OPDIVO [Suspect]
     Active Substance: NIVOLUMAB
     Indication: Non-small cell lung cancer recurrent
     Route: 041
  3. PREDNISOLONE [Suspect]
     Active Substance: PREDNISOLONE
     Indication: Cytokine release syndrome

REACTIONS (2)
  - Cytokine release syndrome [Unknown]
  - Steroid diabetes [Unknown]
